FAERS Safety Report 5517881-0 (Version None)
Quarter: 2007Q4

REPORT INFORMATION
  Report Type: 
  Country: None (occurrence: None)
  Receive Date: 20071113
  Receipt Date: 20071026
  Transmission Date: 20080405
  Serious: Yes (Other)
  Sender: FDA-Public Use
  Company Number: 2007VX001435

PATIENT
  Age: 85 Year
  Sex: Male

DRUGS (11)
  1. TASMAR [Suspect]
     Indication: PARKINSON'S DISEASE
     Dosage: TID;PO
     Route: 048
     Dates: start: 20070426, end: 20070428
  2. LEVODOPA-CARBIDOPA IR [Concomitant]
  3. MIRAPEX [Concomitant]
  4. COZAAR [Concomitant]
  5. ISORDIL [Concomitant]
  6. HYDROCHLOROTHIAZIDE [Concomitant]
  7. XALATAN [Concomitant]
  8. LEVODOPA-CARBIDOPA CR [Concomitant]
  9. VITAMIN CAP [Concomitant]
  10. NAPROXEN [Concomitant]
  11. VITAMIN B6 [Concomitant]

REACTIONS (13)
  - ACTIVITIES OF DAILY LIVING IMPAIRED [None]
  - AGITATION [None]
  - CRYING [None]
  - DEPRESSION [None]
  - DISORIENTATION [None]
  - DRUG INEFFECTIVE [None]
  - DYSARTHRIA [None]
  - FALL [None]
  - HALLUCINATION [None]
  - HALLUCINATION, VISUAL [None]
  - HOMICIDAL IDEATION [None]
  - SUICIDAL IDEATION [None]
  - TREMOR [None]
